FAERS Safety Report 12829475 (Version 1)
Quarter: 2016Q4

REPORT INFORMATION
  Report Type: Spontaneous
  Country: US (occurrence: US)
  Receive Date: 20161007
  Receipt Date: 20161007
  Transmission Date: 20170207
  Serious: No
  Sender: FDA-Public Use
  Company Number: US-SA-2016SA086861

PATIENT
  Age: 72 Year
  Sex: Female

DRUGS (15)
  1. FEMHRT [Concomitant]
     Active Substance: ETHINYL ESTRADIOL\NORETHINDRONE ACETATE
  2. TRAZODONE [Concomitant]
     Active Substance: TRAZODONE HYDROCHLORIDE
  3. BUPROPION. [Concomitant]
     Active Substance: BUPROPION
  4. GABAPENTIN. [Concomitant]
     Active Substance: GABAPENTIN
  5. TYLENOL [Concomitant]
     Active Substance: ACETAMINOPHEN
  6. DULOXETINE. [Concomitant]
     Active Substance: DULOXETINE
  7. DETROL LA [Concomitant]
     Active Substance: TOLTERODINE TARTRATE
  8. BACLOFEN. [Concomitant]
     Active Substance: BACLOFEN
  9. PROVIGIL [Concomitant]
     Active Substance: MODAFINIL
  10. AUBAGIO [Suspect]
     Active Substance: TERIFLUNOMIDE
     Indication: MULTIPLE SCLEROSIS
     Route: 048
  11. ALEVE [Concomitant]
     Active Substance: NAPROXEN SODIUM
  12. AUBAGIO [Suspect]
     Active Substance: TERIFLUNOMIDE
     Indication: MULTIPLE SCLEROSIS
     Route: 048
     Dates: start: 20130823
  13. AMPYRA [Concomitant]
     Active Substance: DALFAMPRIDINE
  14. LEVOTHYROXINE. [Concomitant]
     Active Substance: LEVOTHYROXINE
  15. ALENDRONATE [Concomitant]
     Active Substance: ALENDRONATE SODIUM

REACTIONS (2)
  - Fatigue [Unknown]
  - Product use issue [Unknown]

NARRATIVE: CASE EVENT DATE: 201604
